FAERS Safety Report 24620904 (Version 1)
Quarter: 2024Q4

REPORT INFORMATION
  Report Type: Spontaneous
  Country: US (occurrence: US)
  Receive Date: 20241114
  Receipt Date: 20241114
  Transmission Date: 20250115
  Serious: Yes (Death, Other)
  Sender: AMGEN
  Company Number: US-AMGEN-USASP2024220443

PATIENT

DRUGS (3)
  1. PREDNISONE [Suspect]
     Active Substance: PREDNISONE
     Indication: Immunosuppressant drug therapy
     Dosage: UNK
     Route: 065
  2. TACROLIMUS [Concomitant]
     Active Substance: TACROLIMUS
  3. MYCOPHENOLATE MOFETIL [Concomitant]
     Active Substance: MYCOPHENOLATE MOFETIL

REACTIONS (27)
  - Death [Fatal]
  - Diabetes mellitus [Unknown]
  - Dyslipidaemia [Unknown]
  - Osteoporosis [Unknown]
  - Fracture [Unknown]
  - Osteonecrosis [Unknown]
  - Duodenal ulcer [Unknown]
  - Gastric ulcer [Unknown]
  - Glaucoma [Unknown]
  - Cataract [Unknown]
  - Acute myocardial infarction [Unknown]
  - Pancreatitis [Unknown]
  - Cerebrovascular accident [Unknown]
  - Pulmonary embolism [Unknown]
  - Squamous cell carcinoma [Unknown]
  - Post transplant lymphoproliferative disorder [Unknown]
  - Kaposi^s sarcoma [Unknown]
  - Sepsis [Unknown]
  - Bacteraemia [Unknown]
  - Pneumonia [Unknown]
  - Fungal infection [Unknown]
  - Viral infection [Unknown]
  - Tuberculosis [Unknown]
  - Cytomegalovirus infection [Unknown]
  - Epstein-Barr virus infection [Unknown]
  - BK virus infection [Unknown]
  - Transplant rejection [Unknown]
